FAERS Safety Report 16579170 (Version 3)
Quarter: 2025Q2

REPORT INFORMATION
  Report Type: Spontaneous
  Country: IT (occurrence: IT)
  Receive Date: 20190716
  Receipt Date: 20250602
  Transmission Date: 20250717
  Serious: Yes (Hospitalization, Other)
  Sender: FERRING
  Company Number: None

PATIENT

DRUGS (9)
  1. SOMATROPIN [Suspect]
     Active Substance: SOMATROPIN
     Indication: Muscle building therapy
     Route: 030
  2. SOMATROPIN [Suspect]
     Active Substance: SOMATROPIN
     Route: 065
  3. NANDROLONE [Suspect]
     Active Substance: NANDROLONE
     Indication: Muscle building therapy
     Route: 065
  4. GONADOTROPHIN, CHORIONIC [Suspect]
     Active Substance: GONADOTROPHIN, CHORIONIC
     Indication: Muscle building therapy
     Route: 065
  5. INSULIN NOS [Suspect]
     Active Substance: INSULIN NOS
     Indication: Muscle building therapy
     Dosage: 5 IU, 1 TIME DAILY
     Route: 058
  6. TESTOSTERONE PROPIONATE [Suspect]
     Active Substance: TESTOSTERONE PROPIONATE
     Indication: Muscle building therapy
     Route: 065
  7. TESTOSTERONE PROPIONATE [Suspect]
     Active Substance: TESTOSTERONE PROPIONATE
     Indication: Muscle building therapy
     Route: 030
  8. TRENBOLONE [Suspect]
     Active Substance: TRENBOLONE
     Indication: Muscle building therapy
     Route: 030
  9. RETINOL [Suspect]
     Active Substance: RETINOL
     Indication: Muscle building therapy
     Dosage: 40000 IU, 1 TIME DAILY
     Route: 065

REACTIONS (4)
  - Intracranial pressure increased [Unknown]
  - Drug abuse [Unknown]
  - Product use in unapproved indication [Unknown]
  - Incorrect route of product administration [Unknown]
